FAERS Safety Report 4943186-2 (Version None)
Quarter: 2006Q1

REPORT INFORMATION
  Report Type: 
  Country: None (occurrence: None)
  Receive Date: 20060314
  Receipt Date: 20060125
  Transmission Date: 20060701
  Serious: Yes (Hospitalization, Disabling)
  Sender: FDA-Public Use
  Company Number: DE-MERCK-0601DEU00126

PATIENT
  Age: 57 Year
  Sex: Female

DRUGS (6)
  1. VIOXX [Suspect]
     Indication: OSTEOARTHRITIS
     Route: 048
     Dates: start: 20020201, end: 20041201
  2. LEVOTHYROXINE SODIUM [Concomitant]
     Route: 048
  3. HYDROCHLOROTHIAZIDE AND VALSARTAN [Concomitant]
     Indication: HYPERTENSION
     Route: 048
     Dates: start: 20030101, end: 20041201
  4. AMLODIPINE BESYLATE [Concomitant]
     Indication: HYPERTENSION
     Route: 048
     Dates: start: 20030101, end: 20041201
  5. LORATADINE [Concomitant]
     Indication: SEASONAL ALLERGY
     Route: 048
  6. NEBIVOLOL HYDROCHLORIDE [Concomitant]
     Indication: HYPERTENSION
     Route: 048
     Dates: start: 20030101, end: 20041201

REACTIONS (2)
  - CATHETERISATION CARDIAC [None]
  - INFARCTION [None]
